FAERS Safety Report 17873020 (Version 6)
Quarter: 2020Q3

REPORT INFORMATION
  Report Type: Spontaneous
  Country: US (occurrence: US)
  Receive Date: 20200608
  Receipt Date: 20200804
  Transmission Date: 20201103
  Serious: Yes (Disabling, Other)
  Sender: FDA-Public Use
  Company Number: US-009507513-2006USA001610

PATIENT
  Age: 25 Year
  Sex: Female
  Weight: 63.95 kg

DRUGS (3)
  1. NEXPLANON [Suspect]
     Active Substance: ETONOGESTREL
     Indication: CONTRACEPTION
     Dosage: 1 IMPLANT IN RIGHT ARM (DOMINANT ARM)
     Route: 059
     Dates: start: 20200601
  2. NEXPLANON [Suspect]
     Active Substance: ETONOGESTREL
     Indication: CONTRACEPTION
     Dosage: 1 IMPLANT IN HER NON?DOMINANT ARM (IN LEFT UPPER ARM)
     Route: 059
     Dates: start: 20200414, end: 20200601
  3. VITAMINS (UNSPECIFIED) [Concomitant]
     Active Substance: VITAMINS
     Dosage: UNK (PRENATAL VITAMINS)

REACTIONS (6)
  - Device expulsion [Recovered/Resolved]
  - Complication of device removal [Recovered/Resolved]
  - Implant site pain [Recovered/Resolved]
  - Wrong technique in product usage process [Unknown]
  - Impaired healing [Recovered/Resolved]
  - Complication associated with device [Recovered/Resolved]

NARRATIVE: CASE EVENT DATE: 2020
